FAERS Safety Report 9902841 (Version 1)
Quarter: 2014Q1

REPORT INFORMATION
  Report Type: Spontaneous
  Country: FR (occurrence: FR)
  Receive Date: 20140217
  Receipt Date: 20140217
  Transmission Date: 20141002
  Serious: Yes (Hospitalization)
  Sender: FDA-Public Use
  Company Number: PHHY2014FR017213

PATIENT
  Age: 72 Year
  Sex: Female

DRUGS (2)
  1. 5-FLUOROURACIL [Suspect]
     Indication: OROPHARYNGEAL CANCER
     Dosage: 1700 MG, UNK
     Route: 042
  2. CISPLATIN [Suspect]
     Indication: OROPHARYNGEAL CANCER
     Dosage: 34 MG, UNK
     Route: 042

REACTIONS (4)
  - Cerebral infarction [Unknown]
  - Facial paresis [Unknown]
  - Aphasia [Unknown]
  - Muscular weakness [Unknown]
